FAERS Safety Report 8125791-8 (Version None)
Quarter: 2012Q1

REPORT INFORMATION
  Report Type: 
  Country: None (occurrence: None)
  Receive Date: 20120206
  Receipt Date: 20120120
  Transmission Date: 20120608
  Serious: Yes (Other)
  Sender: FDA-Public Use
  Company Number: TR-1190252

PATIENT
  Age: 28 Year

DRUGS (1)
  1. ALCAINE [Suspect]
     Dosage: OPHTHALMIC
     Route: 047

REACTIONS (4)
  - KERATOPATHY [None]
  - DRUG ABUSE [None]
  - CORNEAL LEUKOMA [None]
  - TOXICITY TO VARIOUS AGENTS [None]
